FAERS Safety Report 26193735 (Version 1)
Quarter: 2025Q4

REPORT INFORMATION
  Report Type: Spontaneous
  Country: EU (occurrence: EU)
  Receive Date: 20251224
  Receipt Date: 20251224
  Transmission Date: 20260117
  Serious: Yes (Other)
  Sender: TEVA
  Company Number: EU-TEVA-VS-3404629

PATIENT
  Age: 67 Year
  Sex: Female

DRUGS (1)
  1. ALBUTEROL [Suspect]
     Active Substance: ALBUTEROL
     Indication: Product used for unknown indication
     Dosage: TEVA
     Route: 065

REACTIONS (6)
  - Asphyxia [Unknown]
  - Choking [Unknown]
  - Product cleaning inadequate [Unknown]
  - Poor quality product administered [Unknown]
  - Product contamination physical [Unknown]
  - Product residue present [Unknown]

NARRATIVE: CASE EVENT DATE: 20251215
